FAERS Safety Report 14256789 (Version 2)
Quarter: 2017Q4

REPORT INFORMATION
  Report Type: Spontaneous
  Country: BR (occurrence: BR)
  Receive Date: 20171206
  Receipt Date: 20171212
  Transmission Date: 20180321
  Serious: Yes (Death, Hospitalization, Other)
  Sender: FDA-Public Use
  Company Number: BR-SEATTLE GENETICS-2017SGN02671

PATIENT
  Age: 20 Year
  Sex: Male

DRUGS (1)
  1. BRENTUXIMAB VEDOTIN [Suspect]
     Active Substance: BRENTUXIMAB VEDOTIN
     Indication: HODGKIN^S DISEASE
     Dosage: 1.8 MG/KG, UNK
     Route: 065

REACTIONS (3)
  - Alopecia [Not Recovered/Not Resolved]
  - Lower respiratory tract infection fungal [Fatal]
  - Respiratory failure [Fatal]
